FAERS Safety Report 18398955 (Version 1)
Quarter: 2020Q4

REPORT INFORMATION
  Report Type: Spontaneous
  Country: US (occurrence: US)
  Receive Date: 20201019
  Receipt Date: 20201019
  Transmission Date: 20210114
  Serious: Yes (Other)
  Sender: FDA-Public Use
  Company Number: US-TEVA-2020-US-1838923

PATIENT
  Age: 84 Year
  Sex: Female

DRUGS (1)
  1. HOMATROPINE METHYLBROMIDE\HYDROCODONE BITARTRATE [Suspect]
     Active Substance: HOMATROPINE METHYLBROMIDE\HYDROCODONE BITARTRATE
     Indication: COUGH
     Route: 065

REACTIONS (9)
  - Cough [Not Recovered/Not Resolved]
  - Therapy interrupted [Unknown]
  - Choking [Not Recovered/Not Resolved]
  - Product supply issue [Unknown]
  - Aphasia [Not Recovered/Not Resolved]
  - Insomnia [Not Recovered/Not Resolved]
  - General physical health deterioration [Not Recovered/Not Resolved]
  - Dyspnoea [Not Recovered/Not Resolved]
  - Oropharyngeal pain [Not Recovered/Not Resolved]
